FAERS Safety Report 24110511 (Version 2)
Quarter: 2024Q3

REPORT INFORMATION
  Report Type: Spontaneous
  Country: US (occurrence: US)
  Receive Date: 20240718
  Receipt Date: 20240906
  Transmission Date: 20241017
  Serious: Yes (Other)
  Sender: PFIZER
  Company Number: US-PFIZER INC-2018277878

PATIENT
  Age: 33 Year
  Sex: Male

DRUGS (4)
  1. BENEFIX [Suspect]
     Active Substance: COAGULATION FACTOR IX RECOMBINANT HUMAN\ISOPROPYL ALCOHOL
     Indication: Haemorrhage
     Dosage: INJECT 500 UNITS W/2 - 6000 UNITS TO EQUAL 6500 UNITS TWICE WEEKLY
     Route: 042
  2. BENEFIX [Suspect]
     Active Substance: COAGULATION FACTOR IX RECOMBINANT HUMAN\ISOPROPYL ALCOHOL
     Indication: Factor IX deficiency
     Dosage: IN ADDITION USE 6600 UNITS A DAY X2
     Route: 042
  3. BENEFIX [Suspect]
     Active Substance: COAGULATION FACTOR IX RECOMBINANT HUMAN\ISOPROPYL ALCOHOL
     Dosage: INJECT 6000 UNITS IV/1-500 UNITS TO EQUAL 6500 UNITS TWICE WEEKLY
     Route: 042
  4. BENEFIX [Suspect]
     Active Substance: COAGULATION FACTOR IX RECOMBINANT HUMAN\ISOPROPYL ALCOHOL
     Dosage: 3,000 UNIT SOLR TO INJECT 6500 UNITS TWICE WEEKLY

REACTIONS (2)
  - Haemarthrosis [Unknown]
  - Arthralgia [Unknown]
